FAERS Safety Report 8910096 (Version 3)
Quarter: 2013Q3

REPORT INFORMATION
  Report Type: Report from Study
  Country: JP (occurrence: JP)
  Receive Date: 20121115
  Receipt Date: 20130905
  Transmission Date: 20140515
  Serious: Yes (Other)
  Sender: FDA-Public Use
  Company Number: JP-VERTEX PHARMACEUTICAL INC.-2012-019694

PATIENT
  Age: 69 Year
  Sex: Female

DRUGS (13)
  1. VX-950 (TELAPREVIR) [Suspect]
     Indication: CHRONIC HEPATITIS C
     Dosage: 2250 MG, QD
     Route: 048
     Dates: start: 20120510, end: 20120717
  2. VX-950 (TELAPREVIR) [Suspect]
     Dosage: 1500 MG, QD
     Route: 048
     Dates: start: 20120718, end: 20120802
  3. PEGINTERFERON ALFA-2B [Suspect]
     Indication: CHRONIC HEPATITIS C
     Dosage: 1.5 ?G/KG, QW
     Route: 058
     Dates: start: 20120510, end: 20120822
  4. PEGINTERFERON ALFA-2B [Suspect]
     Dosage: 0.75 ?G/KG, QW
     Route: 058
     Dates: start: 20120823, end: 20120829
  5. PEGINTERFERON ALFA-2B [Suspect]
     Dosage: 1.5 ?G/KG, QW
     Route: 058
     Dates: start: 20120830
  6. REBETOL [Suspect]
     Indication: CHRONIC HEPATITIS C
     Dosage: 600 MG, QD
     Route: 048
     Dates: start: 20120510, end: 20120717
  7. REBETOL [Suspect]
     Dosage: 400 MG, QD
     Route: 048
     Dates: start: 20120718, end: 20120925
  8. REBETOL [Suspect]
     Dosage: 200 MG, QD
     Route: 048
     Dates: start: 20120926, end: 20121008
  9. REBETOL [Suspect]
     Dosage: 400 MG (MON,WED, FRI) 200 MG (TUES,THU, SAT + SUN)
     Route: 048
     Dates: start: 20121009, end: 20121022
  10. TAKEPRON [Concomitant]
     Dosage: 15 MG, QD
     Route: 048
  11. OLMETEC [Concomitant]
     Dosage: 20 MG, QD
     Route: 048
  12. ZYLORIC [Concomitant]
     Dosage: 200 MG, QD
     Route: 048
     Dates: start: 20120510
  13. ALLELOCK [Concomitant]
     Dosage: 10 MG, QD
     Route: 048
     Dates: start: 20120510

REACTIONS (3)
  - Haemoglobin decreased [Recovered/Resolved]
  - Haemoglobin decreased [Recovered/Resolved]
  - Retinopathy [Recovered/Resolved]
